FAERS Safety Report 5728123-5 (Version None)
Quarter: 2008Q2

REPORT INFORMATION
  Report Type: 
  Country: None (occurrence: None)
  Receive Date: 20080505
  Receipt Date: 20080501
  Transmission Date: 20081010
  Serious: Yes (Other)
  Sender: FDA-Public Use
  Company Number: US-MERCK-0804USA03841

PATIENT
  Age: 42 Year
  Sex: Male
  Weight: 102 kg

DRUGS (4)
  1. JANUMET [Suspect]
     Indication: TYPE 2 DIABETES MELLITUS
     Route: 048
     Dates: start: 20080319, end: 20080324
  2. AMBIEN [Concomitant]
     Route: 065
  3. CELEXA [Concomitant]
     Route: 065
  4. PROVIGIL [Concomitant]
     Route: 065

REACTIONS (3)
  - ADVERSE DRUG REACTION [None]
  - PYREXIA [None]
  - RASH ERYTHEMATOUS [None]
